FAERS Safety Report 9296149 (Version 1)
Quarter: 2013Q2

REPORT INFORMATION
  Report Type: Spontaneous
  Country: US (occurrence: US)
  Receive Date: 20130517
  Receipt Date: 20130517
  Transmission Date: 20140414
  Serious: Yes (Death)
  Sender: FDA-Public Use
  Company Number: US-GLAXOSMITHKLINE-A0697767A

PATIENT
  Age: 46 Year
  Sex: Male
  Weight: 65.9 kg

DRUGS (9)
  1. AVANDIA [Suspect]
     Indication: TYPE 2 DIABETES MELLITUS
     Dosage: 8MG PER DAY
     Route: 048
     Dates: start: 20050209, end: 20060430
  2. METFORMIN [Concomitant]
  3. HUMALOG [Concomitant]
  4. REGULAR INSULIN [Concomitant]
  5. INSULIN LANTUS [Concomitant]
  6. ZOCOR [Concomitant]
  7. WELLBUTRIN [Concomitant]
  8. TERAZOSIN [Concomitant]
  9. LISINOPRIL [Concomitant]

REACTIONS (2)
  - Cardiac arrest [Fatal]
  - Myocardial infarction [Unknown]
